FAERS Safety Report 26005281 (Version 1)
Quarter: 2025Q4

REPORT INFORMATION
  Report Type: Spontaneous
  Country: US (occurrence: US)
  Receive Date: 20251106
  Receipt Date: 20251106
  Transmission Date: 20260119
  Serious: Yes (Hospitalization, Other)
  Sender: SANOFI AVENTIS
  Company Number: US-SANOFI-02680865

PATIENT
  Age: 82 Year
  Sex: Male

DRUGS (1)
  1. CEREZYME [Suspect]
     Active Substance: IMIGLUCERASE
     Indication: Gaucher^s disease
     Dosage: 4400 MG, QOW
     Route: 065

REACTIONS (2)
  - Hospitalisation [Unknown]
  - Coronary artery bypass [Unknown]
